FAERS Safety Report 7519547-4 (Version None)
Quarter: 2011Q2

REPORT INFORMATION
  Report Type: 
  Country: None (occurrence: None)
  Receive Date: 20110602
  Receipt Date: 20110526
  Transmission Date: 20111010
  Serious: Yes (Hospitalization)
  Sender: FDA-Public Use
  Company Number: BR-PFIZER INC-2011078901

PATIENT
  Age: 49 Year
  Sex: Female
  Weight: 64.5 kg

DRUGS (6)
  1. ACETYLSALICYLIC ACID [Concomitant]
     Indication: THROMBOSIS PROPHYLAXIS
     Dosage: 100 MG, ONCE
     Route: 048
     Dates: start: 20090414
  2. PROPRANOLOL [Concomitant]
     Indication: HYPERTENSION
     Dosage: 40 MG, 3X/DAY
     Route: 048
     Dates: start: 20090412
  3. OMEPRAZOLE [Concomitant]
     Indication: PEPTIC ULCER
     Dosage: 20 MG, 2X/DAY
     Route: 048
     Dates: start: 20090430, end: 20110426
  4. MYCOPHENOLATE MOFETIL [Concomitant]
     Indication: RENAL TRANSPLANT
     Dosage: 720 MG, 2X/DAY
     Route: 048
     Dates: start: 20090412
  5. PREDNISONE [Concomitant]
     Indication: RENAL TRANSPLANT
     Dosage: 5 MG, ONCE
     Route: 048
     Dates: start: 20090412
  6. SIROLIMUS [Suspect]
     Indication: PROPHYLAXIS AGAINST TRANSPLANT REJECTION
     Dosage: 2 MG, SINGLE
     Route: 048
     Dates: start: 20090714, end: 20110410

REACTIONS (2)
  - SKIN INFECTION [None]
  - SKIN NECROSIS [None]
